FAERS Safety Report 6030381-7 (Version None)
Quarter: 2009Q1

REPORT INFORMATION
  Report Type: 
  Country: None (occurrence: None)
  Receive Date: 20090107
  Receipt Date: 20080811
  Transmission Date: 20090719
  Serious: No
  Sender: FDA-Public Use
  Company Number: US-BAYER-200813358BCC

PATIENT
  Age: 49 Year
  Sex: Male

DRUGS (2)
  1. ALEVE [Suspect]
     Indication: ANALGESIA
     Dosage: UNIT DOSE: 220 MG
     Route: 048
     Dates: start: 20080810
  2. OXYCODONE [Concomitant]

REACTIONS (4)
  - ABDOMINAL PAIN UPPER [None]
  - INSOMNIA [None]
  - PAIN [None]
  - VOMITING [None]
